FAERS Safety Report 25320134 (Version 1)
Quarter: 2025Q2

REPORT INFORMATION
  Report Type: Spontaneous
  Country: US (occurrence: None)
  Receive Date: 20250515
  Receipt Date: 20250515
  Transmission Date: 20250716
  Serious: Yes (Life-Threatening, Disabling)
  Sender: FDA-CTU
  Company Number: None

PATIENT
  Age: 39 Year
  Sex: Female
  Weight: 58.5 kg

DRUGS (2)
  1. FETZIMA [Suspect]
     Active Substance: LEVOMILNACIPRAN HYDROCHLORIDE
     Route: 048
  2. AJOVY [Concomitant]
     Active Substance: FREMANEZUMAB-VFRM

REACTIONS (19)
  - Product communication issue [None]
  - Anorgasmia [None]
  - Sexual dysfunction [None]
  - Emotional poverty [None]
  - Insomnia [None]
  - Insurance issue [None]
  - Suicidal behaviour [None]
  - Crying [None]
  - Muscle spasms [None]
  - Brain fog [None]
  - Insomnia [None]
  - Nausea [None]
  - Headache [None]
  - Orthostatic hypotension [None]
  - Heart rate increased [None]
  - Movement disorder [None]
  - Impaired work ability [None]
  - Social problem [None]
  - Withdrawal syndrome [None]
